FAERS Safety Report 5570244-4 (Version None)
Quarter: 2007Q4

REPORT INFORMATION
  Report Type: 
  Country: None (occurrence: None)
  Receive Date: 20071220
  Receipt Date: 20071210
  Transmission Date: 20080405
  Serious: Yes (Hospitalization)
  Sender: FDA-Public Use
  Company Number: US-PFIZER INC-2007105422

PATIENT
  Sex: Male
  Weight: 105 kg

DRUGS (10)
  1. CHANTIX [Suspect]
     Indication: SMOKING CESSATION THERAPY
  2. EFFEXOR XR [Concomitant]
  3. LITHIUM CARBONATE [Concomitant]
  4. KLONOPIN [Concomitant]
  5. GEODON [Concomitant]
  6. WARFARIN SODIUM [Concomitant]
  7. DETROL [Concomitant]
  8. RESTORIL [Concomitant]
  9. LYRICA [Concomitant]
  10. MORPHINE [Concomitant]

REACTIONS (6)
  - ALOPECIA [None]
  - DEHYDRATION [None]
  - DIARRHOEA [None]
  - INFLUENZA [None]
  - MALAISE [None]
  - NAUSEA [None]
